FAERS Safety Report 4972158-7 (Version None)
Quarter: 2006Q2

REPORT INFORMATION
  Report Type: 
  Country: None (occurrence: None)
  Receive Date: 20060412
  Receipt Date: 20060412
  Transmission Date: 20061013
  Serious: No
  Sender: FDA-Public Use
  Company Number: None

PATIENT
  Age: 71 Year
  Sex: Female

DRUGS (1)
  1. TIZANIDINE HCL [Suspect]
     Dosage: 2 TABLETS AT BEDTIME
     Dates: start: 20060310, end: 20060319

REACTIONS (3)
  - DIFFICULTY IN WALKING [None]
  - PHARMACEUTICAL PRODUCT COMPLAINT [None]
  - SOMNOLENCE [None]
